FAERS Safety Report 13504728 (Version 2)
Quarter: 2017Q3

REPORT INFORMATION
  Report Type: Spontaneous
  Country: US (occurrence: US)
  Receive Date: 20170502
  Receipt Date: 20170724
  Transmission Date: 20171127
  Serious: No
  Sender: FDA-Public Use
  Company Number: US-IMPAX LABORATORIES, INC-2017-IPXL-00218

PATIENT
  Age: 79 Year
  Sex: Male
  Weight: 111 kg

DRUGS (7)
  1. SEROQUEL [Suspect]
     Active Substance: QUETIAPINE FUMARATE
     Indication: HALLUCINATION
     Dosage: UNK
     Route: 065
     Dates: start: 20170116
  2. MIRAPEX [Concomitant]
     Active Substance: PRAMIPEXOLE DIHYDROCHLORIDE
     Indication: PARKINSON^S DISEASE
     Dosage: 1 MG, UNK
     Route: 065
  3. OXYBUTYNIN [Concomitant]
     Active Substance: OXYBUTYNIN
     Indication: URINARY INCONTINENCE
     Dosage: UNK
     Route: 065
     Dates: start: 201701
  4. COLCHICINE. [Concomitant]
     Active Substance: COLCHICINE
     Indication: GOUT
     Dosage: UNK
     Route: 065
  5. RYTARY [Suspect]
     Active Substance: CARBIDOPA\LEVODOPA
     Indication: PARKINSON^S DISEASE
     Dosage: 36.25MG/145MG, 3 CAPSULES, 3/DAY
     Route: 048
  6. RYTARY [Suspect]
     Active Substance: CARBIDOPA\LEVODOPA
     Dosage: 36.25/145MG, 2 CAPSULES, 3/DAY
     Route: 048
     Dates: start: 20170116
  7. ASPIRIN. [Concomitant]
     Active Substance: ASPIRIN
     Indication: PRODUCT USED FOR UNKNOWN INDICATION
     Dosage: 81 MG, UNK
     Route: 065

REACTIONS (7)
  - Musculoskeletal stiffness [Not Recovered/Not Resolved]
  - Lethargy [Unknown]
  - Delusion [Not Recovered/Not Resolved]
  - Hallucination [Not Recovered/Not Resolved]
  - Paranoia [Not Recovered/Not Resolved]
  - Somnolence [Unknown]
  - Freezing phenomenon [Recovering/Resolving]

NARRATIVE: CASE EVENT DATE: 201612
